FAERS Safety Report 10974541 (Version 1)
Quarter: 2015Q2

REPORT INFORMATION
  Report Type: Spontaneous
  Country: JP (occurrence: JP)
  Receive Date: 20150401
  Receipt Date: 20150401
  Transmission Date: 20150821
  Serious: Yes (Hospitalization)
  Sender: FDA-Public Use
  Company Number: JP-TEVA-538021ISR

PATIENT
  Age: 68 Year
  Sex: Male

DRUGS (68)
  1. BERIZYM (PANCREATIN/BIODIASTASE/LIPASE/CELLULOSE) [Concomitant]
     Dosage: .99 GRAM DAILY;
     Route: 048
     Dates: start: 20141026, end: 20141031
  2. LAC-B (BIFIDOBACTERIUM) [Concomitant]
     Dosage: 3 GRAM DAILY;
     Route: 048
     Dates: start: 20141029, end: 20141103
  3. ELENTAL [Concomitant]
     Dosage: 240 GRAM DAILY;
     Route: 048
     Dates: start: 20141106, end: 20141106
  4. ISOTONIC SODIUM CHLORIDE [Concomitant]
     Active Substance: SODIUM CHLORIDE
     Dosage: 200 ML DAILY;
     Route: 065
     Dates: start: 20141031, end: 20141031
  5. ISOTONIC SODIUM CHLORIDE [Concomitant]
     Active Substance: SODIUM CHLORIDE
     Dosage: 300 ML DAILY;
     Route: 065
     Dates: start: 20141101, end: 20141101
  6. RANITIDINE [Concomitant]
     Active Substance: RANITIDINE\RANITIDINE HYDROCHLORIDE
     Dosage: 50 MILLIGRAM DAILY;
     Route: 065
     Dates: start: 20141022, end: 20141023
  7. BICARBON [Concomitant]
     Active Substance: SODIUM BICARBONATE
     Dosage: 500 ML DAILY;
     Route: 065
     Dates: start: 20141024, end: 20141024
  8. ACELIO [Concomitant]
     Active Substance: ACETAMINOPHEN
     Dosage: 4000 MILLIGRAM DAILY;
     Route: 042
     Dates: start: 20141025, end: 20141025
  9. PRIMPERAN [Concomitant]
     Active Substance: METOCLOPRAMIDE HYDROCHLORIDE
     Dosage: 10 MILLIGRAM DAILY;
     Route: 065
     Dates: start: 20141023, end: 20141023
  10. FENTANYL. [Concomitant]
     Active Substance: FENTANYL
     Dosage: .5 MILLIGRAM DAILY;
     Route: 065
     Dates: start: 20141023, end: 20141023
  11. FILGRASTIM BS INJ. ^NK^(FILGRASTIM[GENETICAL RECOMBINATION]) [Suspect]
     Active Substance: FILGRASTIM
     Indication: NEUTROPENIA
     Dosage: 50 MICROGRAM/M2 DAILY;
     Route: 058
     Dates: start: 20141031, end: 20141101
  12. MARZULENE [Concomitant]
     Active Substance: SODIUM GUALENATE
     Dosage: 3 DOSAGE FORMS DAILY;
     Route: 048
     Dates: start: 20141029, end: 20141103
  13. MARZULENE [Concomitant]
     Active Substance: SODIUM GUALENATE
     Dosage: 3 DOSAGE FORMS DAILY;
     Route: 048
     Dates: start: 20141112, end: 20141117
  14. ELENTAL [Concomitant]
     Dosage: 240 GRAM DAILY;
     Route: 048
     Dates: start: 20141031, end: 20141104
  15. ELENTAL [Concomitant]
     Dosage: 640 GRAM DAILY;
     Route: 048
     Dates: start: 20141112, end: 20141116
  16. BICARBON [Concomitant]
     Active Substance: SODIUM BICARBONATE
     Dosage: 1000 ML DAILY;
     Route: 065
     Dates: start: 20141023, end: 20141023
  17. PANTOL [Concomitant]
     Active Substance: DEXPANTHENOL
     Dosage: 1000 MILLIGRAM DAILY;
     Route: 065
     Dates: start: 20141025, end: 20141025
  18. SOLITA-T NO.3 [Concomitant]
     Dosage: 500 ML DAILY;
     Route: 065
     Dates: start: 20141023, end: 20141023
  19. SOLITA-T NO.3 [Concomitant]
     Dosage: 1000 ML DAILY;
     Route: 065
     Dates: start: 20141024, end: 20141024
  20. PRIMPERAN [Concomitant]
     Active Substance: METOCLOPRAMIDE HYDROCHLORIDE
     Dosage: 10 MILLIGRAM DAILY;
     Route: 065
     Dates: start: 20141025, end: 20141027
  21. FENTANYL. [Concomitant]
     Active Substance: FENTANYL
     Dosage: .7 MILLIGRAM DAILY;
     Route: 065
     Dates: start: 20141023, end: 20141023
  22. VANCOMYCIN [Concomitant]
     Active Substance: VANCOMYCIN
     Dosage: 1 GRAM DAILY;
     Route: 042
     Dates: start: 20141105, end: 20141113
  23. BIOFERMIN [Concomitant]
     Active Substance: BACILLUS SUBTILIS\LACTOBACILLUS ACIDOPHILUS\STREPTOCOCCUS FAECAIS
     Dosage: .99 GRAM DAILY;
     Route: 048
     Dates: start: 20141026, end: 20141031
  24. GLUCOSE [Concomitant]
     Active Substance: DEXTROSE
     Dosage: 250 ML DAILY;
     Route: 065
     Dates: start: 20141023, end: 20141023
  25. PANTOL [Concomitant]
     Active Substance: DEXPANTHENOL
     Dosage: 500 MILLIGRAM DAILY;
     Route: 065
     Dates: start: 20141024, end: 20141024
  26. PRIMPERAN [Concomitant]
     Active Substance: METOCLOPRAMIDE HYDROCHLORIDE
     Dosage: 20 MILLIGRAM DAILY;
     Route: 065
     Dates: start: 20141024, end: 20141024
  27. ZOSYN [Concomitant]
     Active Substance: PIPERACILLIN SODIUM\TAZOBACTAM SODIUM
     Dosage: 9.0-13.5 G/DAY
     Route: 042
     Dates: start: 20141025, end: 20141031
  28. MICAMLO [Concomitant]
     Active Substance: AMLODIPINE BESYLATE\TELMISARTAN
     Dosage: 1 DOSAGE FORMS DAILY;
     Route: 048
     Dates: start: 20140930, end: 20141029
  29. CALONAL [Concomitant]
     Active Substance: ACETAMINOPHEN
     Dosage: 1800 MILLIGRAM DAILY;
     Route: 048
     Dates: start: 20141026, end: 20141028
  30. LAC-B (BIFIDOBACTERIUM) [Concomitant]
     Dosage: 3 GRAM DAILY;
     Route: 048
     Dates: start: 20141105, end: 20141110
  31. ELENTAL [Concomitant]
     Dosage: 480 GRAM DAILY;
     Route: 048
     Dates: start: 20141105, end: 20141105
  32. ELENTAL [Concomitant]
     Dosage: 480 GRAM DAILY;
     Route: 048
     Dates: start: 20141107, end: 20141110
  33. ELENTAL [Concomitant]
     Dosage: 400 GRAM DAILY;
     Route: 048
     Dates: start: 20141117, end: 20141117
  34. ISOTONIC SODIUM CHLORIDE [Concomitant]
     Active Substance: SODIUM CHLORIDE
     Dosage: 200 ML DAILY;
     Route: 065
     Dates: start: 20141022, end: 20141022
  35. ISOTONIC SODIUM CHLORIDE [Concomitant]
     Active Substance: SODIUM CHLORIDE
     Dosage: 50 ML DAILY;
     Route: 065
     Dates: start: 20141024, end: 20141024
  36. PACLITAXEL. [Concomitant]
     Active Substance: PACLITAXEL
     Dosage: 30 MILLIGRAM DAILY;
     Route: 042
     Dates: start: 20141022, end: 20141023
  37. RESTAMIN [Concomitant]
     Active Substance: DIPHENHYDRAMINE
     Dosage: 50 MILLIGRAM DAILY;
     Route: 048
     Dates: start: 20141022, end: 20141022
  38. PANTOL [Concomitant]
     Active Substance: DEXPANTHENOL
     Dosage: 500 MILLIGRAM DAILY;
     Route: 065
     Dates: start: 20141027, end: 20141027
  39. ATARAX-P [Concomitant]
     Active Substance: HYDROXYZINE HYDROCHLORIDE
     Dosage: 25 MILLIGRAM DAILY;
     Route: 065
     Dates: start: 20141026, end: 20141026
  40. MIRACLID [Concomitant]
     Active Substance: ULINASTATIN
     Dosage: 50,000-150,000 UNIT/DAY
     Route: 042
     Dates: start: 20141025, end: 20141103
  41. FINIBAX [Concomitant]
     Active Substance: DORIPENEM MONOHYDRATE
     Dosage: 0.25-0.75 G/DAY,
     Route: 042
     Dates: start: 20141105, end: 20141117
  42. MARZULENE [Concomitant]
     Active Substance: SODIUM GUALENATE
     Dosage: 3 DOSAGE FORMS DAILY;
     Route: 048
     Dates: start: 20141105, end: 20141110
  43. ISOTONIC SODIUM CHLORIDE [Concomitant]
     Active Substance: SODIUM CHLORIDE
     Dosage: 150 ML DAILY;
     Route: 065
     Dates: start: 20141026, end: 20141026
  44. ISOTONIC SODIUM CHLORIDE [Concomitant]
     Active Substance: SODIUM CHLORIDE
     Dosage: 200 ML DAILY;
     Route: 065
     Dates: start: 20141105, end: 20141105
  45. PANTOL [Concomitant]
     Active Substance: DEXPANTHENOL
     Dosage: 1500 MILLIGRAM DAILY;
     Route: 065
     Dates: start: 20141026, end: 20141026
  46. RINACETO [Concomitant]
     Dosage: 500 ML DAILY;
     Route: 065
     Dates: start: 20141023, end: 20141024
  47. CEFEPIME [Concomitant]
     Active Substance: CEFEPIME\CEFEPIME HYDROCHLORIDE
     Dosage: 3 GRAM DAILY;
     Route: 042
     Dates: start: 20141031, end: 20141105
  48. CRAVIT [Concomitant]
     Active Substance: LEVOFLOXACIN
     Dosage: 500 MILLIGRAM DAILY;
     Route: 048
     Dates: start: 20141118, end: 20141122
  49. LAC-B (BIFIDOBACTERIUM) [Concomitant]
     Dosage: 3 GRAM DAILY;
     Route: 048
     Dates: start: 20141112, end: 20141117
  50. ELENTAL [Concomitant]
     Dosage: 240 GRAM DAILY;
     Route: 048
     Dates: start: 20141120, end: 20141122
  51. ISOTONIC SODIUM CHLORIDE [Concomitant]
     Active Substance: SODIUM CHLORIDE
     Dosage: 250 ML DAILY;
     Route: 065
     Dates: start: 20141023, end: 20141023
  52. DEXART [Concomitant]
     Active Substance: DEXAMETHASONE SODIUM PHOSPHATE
     Dosage: 5 DOSAGE FORMS DAILY;
     Route: 065
     Dates: start: 20141022, end: 20141023
  53. VITAMEDIN [Concomitant]
     Active Substance: CYANOCOBALAMIN\PYRIDOXINE HYDROCHLORIDE\THIAMINE
     Dosage: 1 DOSAGE FORMS DAILY;
     Route: 042
     Dates: start: 20141023, end: 20141024
  54. SOSEGON [Concomitant]
     Active Substance: PENTAZOCINE
     Dosage: 15 MILLIGRAM DAILY;
     Route: 065
     Dates: start: 20141026, end: 20141026
  55. FUNGUARD [Concomitant]
     Active Substance: MICAFUNGIN SODIUM
     Dosage: 50 MILLIGRAM DAILY;
     Route: 042
     Dates: start: 20141111, end: 20141119
  56. ELENTAL [Concomitant]
     Dosage: 240 GRAM DAILY;
     Route: 048
     Dates: start: 20141111, end: 20141111
  57. OPYSTAN [Concomitant]
     Active Substance: MEPERIDINE
     Dosage: 35 MILLIGRAM DAILY;
     Route: 065
     Dates: start: 20141010, end: 20141010
  58. PACLITAXEL. [Concomitant]
     Active Substance: PACLITAXEL
     Dosage: 100 MILLIGRAM DAILY;
     Route: 042
     Dates: start: 20141023, end: 20141023
  59. ACELIO [Concomitant]
     Active Substance: ACETAMINOPHEN
     Dosage: 2000 MILLIGRAM DAILY;
     Route: 042
     Dates: start: 20141024, end: 20141024
  60. ASCORBIC ACID. [Concomitant]
     Active Substance: ASCORBIC ACID
     Dosage: 500 MILLIGRAM DAILY;
     Route: 065
     Dates: start: 20141023, end: 20141024
  61. ULTIVA [Concomitant]
     Active Substance: REMIFENTANIL HYDROCHLORIDE
     Dosage: 2 MILLIGRAM DAILY;
     Route: 042
     Dates: start: 20141023, end: 20141023
  62. SANDOSTATIN [Concomitant]
     Active Substance: OCTREOTIDE ACETATE
     Dosage: 100 MICROGRAM DAILY;
     Route: 042
     Dates: start: 20141025, end: 20141111
  63. ISOTONIC SODIUM CHLORIDE [Concomitant]
     Active Substance: SODIUM CHLORIDE
     Dosage: 100 ML DAILY;
     Route: 065
     Dates: start: 20141030, end: 20141030
  64. POLARAMINE [Concomitant]
     Active Substance: DEXCHLORPHENIRAMINE MALEATE
     Dosage: 5 MILLIGRAM DAILY;
     Route: 065
     Dates: start: 20141023, end: 20141023
  65. CEFAZOLIN [Concomitant]
     Active Substance: CEFAZOLIN
     Dosage: 3 GRAM DAILY;
     Dates: start: 20141023, end: 20141023
  66. SOLITA-T NO.3 [Concomitant]
     Dosage: 1500 ML DAILY;
     Route: 065
     Dates: start: 20141025, end: 20141025
  67. SOLITA-T NO.3 [Concomitant]
     Dosage: 1000 ML DAILY;
     Route: 065
     Dates: start: 20141027, end: 20141027
  68. BFLUID [Concomitant]
     Active Substance: AMINO ACIDS\DEXTROSE\ELECTROLYTES NOS\VITAMINS
     Dosage: 500 ML DAILY;
     Route: 065
     Dates: start: 20141024, end: 20141025

REACTIONS (2)
  - Suture rupture [Recovered/Resolved]
  - Abdominal abscess [Recovered/Resolved]

NARRATIVE: CASE EVENT DATE: 20141105
